FAERS Safety Report 18636755 (Version 3)
Quarter: 2021Q2

REPORT INFORMATION
  Report Type: Report from Study
  Country: US (occurrence: US)
  Receive Date: 20201218
  Receipt Date: 20210520
  Transmission Date: 20210717
  Serious: Yes (Hospitalization, Other)
  Sender: FDA-Public Use
  Company Number: US-SHIRE-US202028883

PATIENT
  Age: 19 Year
  Sex: Male

DRUGS (1)
  1. CUVITRU [Suspect]
     Active Substance: HUMAN IMMUNOGLOBULIN G
     Indication: PRIMARY IMMUNODEFICIENCY SYNDROME
     Dosage: UNK
     Route: 065

REACTIONS (6)
  - Gallbladder disorder [Unknown]
  - Migraine [Unknown]
  - Eating disorder [Unknown]
  - Abdominal pain [Unknown]
  - Sepsis [Unknown]
  - Vomiting [Unknown]

NARRATIVE: CASE EVENT DATE: 202102
